FAERS Safety Report 8433010-8 (Version None)
Quarter: 2012Q2

REPORT INFORMATION
  Report Type: 
  Country: None (occurrence: None)
  Receive Date: 20120613
  Receipt Date: 20120604
  Transmission Date: 20120825
  Serious: Yes (Hospitalization, Other)
  Sender: FDA-Public Use
  Company Number: US-ABBOTT-12P-163-0942564-00

PATIENT
  Age: 42 Year
  Sex: Female

DRUGS (23)
  1. PROTONICS [Suspect]
     Indication: PRODUCT USED FOR UNKNOWN INDICATION
  2. CLONAZEPAM [Concomitant]
     Indication: INSOMNIA
     Dosage: 2 TABS AT NIGHT
  3. SAVELLA [Concomitant]
     Indication: FIBROMYALGIA
     Dosage: 1 TAB IN THE AM AND AT NIGHT
  4. HUMIRA [Suspect]
     Dates: start: 20120301, end: 20120301
  5. SERTRALINE HYDROCHLORIDE [Concomitant]
     Indication: DEPRESSION
  6. VITAMIN D [Concomitant]
     Indication: VITAMIN D DECREASED
  7. NABUMETONE [Concomitant]
     Indication: CROHN'S DISEASE
  8. CRANBERRY GEL CAPS [Concomitant]
     Indication: VITAMIN SUPPLEMENTATION
  9. AMITRIPTYLINE HCL [Concomitant]
     Indication: FEELING OF RELAXATION
     Dosage: 1 TAB AT LUNCH AND 2 TABS AT NIGHT
  10. SERTRALINE HYDROCHLORIDE [Concomitant]
     Indication: ANXIETY
     Dosage: 1/2 TAB AT NIGHT
  11. ALLOPURINOL [Concomitant]
     Indication: BLOOD URIC ACID INCREASED
     Dosage: DAILY
  12. LORAZEPAM [Concomitant]
     Indication: FIBROMYALGIA
  13. NABUMETONE [Concomitant]
     Indication: RHEUMATOID ARTHRITIS
     Dosage: 1 TAB IN THE AM AND AT NIGHT
  14. ATENOLOL [Concomitant]
     Indication: PRODUCT USED FOR UNKNOWN INDICATION
  15. HUMIRA [Suspect]
  16. SPIRONOLACTONE [Concomitant]
     Indication: DIURETIC THERAPY
     Dosage: IN THE AM AND AT NOON
  17. TOPIRAMATE [Concomitant]
     Indication: MIGRAINE
  18. HUMIRA [Suspect]
     Indication: CROHN'S DISEASE
     Dates: start: 20110101, end: 20120101
  19. CYCLOBENZAPRINE [Concomitant]
     Indication: FIBROMYALGIA
     Dosage: IN THE AM
  20. VITAMIN B-12 [Concomitant]
     Indication: SUPPLEMENTATION THERAPY
  21. PROTONIX [Concomitant]
     Indication: GASTROOESOPHAGEAL REFLUX DISEASE
  22. NABUMETONE [Concomitant]
     Indication: PAIN
  23. PROMETHAZINE [Concomitant]
     Indication: NAUSEA
     Dosage: EVERY 4-6 HOURS, AS NEEDED

REACTIONS (6)
  - HAEMORRHAGE [None]
  - INJECTION SITE PAIN [None]
  - INTESTINAL OBSTRUCTION [None]
  - ENDOMETRIAL ABLATION [None]
  - PAIN [None]
  - MIGRAINE [None]
